FAERS Safety Report 18556081 (Version 1)
Quarter: 2020Q4

REPORT INFORMATION
  Report Type: Spontaneous
  Country: CN (occurrence: CN)
  Receive Date: 20201127
  Receipt Date: 20201127
  Transmission Date: 20210114
  Serious: Yes (Other)
  Sender: FDA-Public Use
  Company Number: CN-BAXTER-2020BAX023883

PATIENT
  Age: 62 Year
  Sex: Male
  Weight: 78 kg

DRUGS (8)
  1. XELODA [Suspect]
     Active Substance: CAPECITABINE
     Indication: COLON CANCER
     Dosage: AFTER BREAKFAST.?TABLET
     Route: 048
     Dates: start: 20201001, end: 20201015
  2. 5% GLUCOSE  INJECTION [Suspect]
     Active Substance: DEXTROSE
     Indication: MEDICATION DILUTION
     Route: 041
     Dates: start: 20201001, end: 20201001
  3. 5% GLUCOSE  INJECTION [Suspect]
     Active Substance: DEXTROSE
     Route: 041
     Dates: start: 20201028
  4. LESHADING [Suspect]
     Active Substance: OXALIPLATIN
     Indication: CHEMOTHERAPY
     Route: 041
     Dates: start: 20201028
  5. XELODA [Suspect]
     Active Substance: CAPECITABINE
     Indication: COLON CANCER
     Dosage: AFTER BREAKFAST.?TABLET
     Route: 048
     Dates: start: 20201028
  6. LESHADING [Suspect]
     Active Substance: OXALIPLATIN
     Indication: COLON CANCER
     Route: 041
     Dates: start: 20201001, end: 20201001
  7. XELODA [Suspect]
     Active Substance: CAPECITABINE
     Indication: CHEMOTHERAPY
     Dosage: AFTER DINNER.?TABLET
     Route: 048
     Dates: start: 20201001, end: 20201015
  8. XELODA [Suspect]
     Active Substance: CAPECITABINE
     Dosage: AFTER DINNER.?TABLET
     Route: 048
     Dates: start: 20201028

REACTIONS (2)
  - Granulocytopenia [Recovered/Resolved]
  - Leukopenia [Recovered/Resolved]

NARRATIVE: CASE EVENT DATE: 20201023
